FAERS Safety Report 8827306 (Version 1)
Quarter: 2012Q4

REPORT INFORMATION
  Report Type: 
  Country: DE (occurrence: IT)
  Receive Date: 20121008
  Receipt Date: 20121008
  Transmission Date: 20130627
  Serious: Yes (Other)
  Sender: FDA-Public Use
  Company Number: IT-BRISTOL-MYERS SQUIBB COMPANY-17014671

PATIENT

DRUGS (1)
  1. ERBITUX [Suspect]
     Indication: COLON CANCER

REACTIONS (4)
  - Urinary tract infection [Unknown]
  - Anaemia [Unknown]
  - Diarrhoea [Unknown]
  - Dermatitis [Unknown]
